FAERS Safety Report 10573298 (Version 1)
Quarter: 2014Q4

REPORT INFORMATION
  Report Type: Spontaneous
  Country: FR (occurrence: FR)
  Receive Date: 20141110
  Receipt Date: 20141110
  Transmission Date: 20150529
  Serious: Yes (Life-Threatening, Hospitalization)
  Sender: FDA-Public Use
  Company Number: FR-SA-2014SA151168

PATIENT
  Age: 54 Year
  Sex: Female

DRUGS (13)
  1. LANTUS [Suspect]
     Active Substance: INSULIN GLARGINE
     Indication: TYPE 2 DIABETES MELLITUS
     Route: 058
  2. LEXOMIL [Suspect]
     Active Substance: BROMAZEPAM
     Route: 048
     Dates: start: 20141006, end: 20141006
  3. NOVORAPID [Suspect]
     Active Substance: INSULIN ASPART
     Indication: TYPE 2 DIABETES MELLITUS
     Route: 058
  4. GAVISCON [Concomitant]
     Active Substance: ALUMINUM HYDROXIDE\MAGNESIUM CARBONATE
     Route: 048
  5. DICLOFENAC [Concomitant]
     Active Substance: DICLOFENAC
     Route: 048
  6. IMOVANE [Concomitant]
     Active Substance: ZOPICLONE
     Route: 048
  7. CLOMIPRAMINE [Concomitant]
     Active Substance: CLOMIPRAMINE
     Route: 048
  8. FLECAINE [Concomitant]
     Active Substance: FLECAINIDE
     Route: 048
  9. LOVENOX [Concomitant]
     Active Substance: ENOXAPARIN SODIUM
  10. LANTUS [Suspect]
     Active Substance: INSULIN GLARGINE
     Indication: TYPE 2 DIABETES MELLITUS
     Route: 065
     Dates: start: 20141006, end: 20141006
  11. ESCITALOPRAM [Concomitant]
     Active Substance: ESCITALOPRAM OXALATE
     Route: 048
  12. NOVORAPID [Suspect]
     Active Substance: INSULIN ASPART
     Indication: TYPE 2 DIABETES MELLITUS
     Route: 065
     Dates: start: 20141006, end: 20141006
  13. SERETIDE [Concomitant]
     Active Substance: FLUTICASONE FUROATE\SALMETEROL XINAFOATE
     Route: 055

REACTIONS (3)
  - Hypokalaemia [Recovered/Resolved]
  - Overdose [Recovered/Resolved]
  - Coma [Recovered/Resolved]

NARRATIVE: CASE EVENT DATE: 20141006
